FAERS Safety Report 10811127 (Version 1)
Quarter: 2015Q1

REPORT INFORMATION
  Report Type: Report from Study
  Country: US (occurrence: US)
  Receive Date: 20150217
  Receipt Date: 20150217
  Transmission Date: 20150721
  Serious: No
  Sender: FDA-Public Use
  Company Number: US-ABBVIE-14K-163-1226250-00

PATIENT
  Age: 75 Year
  Sex: Male

DRUGS (5)
  1. TRAMADOL [Concomitant]
     Active Substance: TRAMADOL
     Indication: BACK PAIN
  2. VITAMIN B12 [Concomitant]
     Active Substance: CYANOCOBALAMIN
     Indication: ILEECTOMY
  3. WELCHOL [Concomitant]
     Active Substance: COLESEVELAM HYDROCHLORIDE
     Indication: ADVERSE EVENT
     Dosage: WITH MEALS, USUALLY TAKES 1 TAB IN AM AND 1 TAB IN PM
  4. PENTASA [Concomitant]
     Active Substance: MESALAMINE
     Indication: PRODUCT USED FOR UNKNOWN INDICATION
     Dosage: TWO TABLET AT MORNING AND TWO TABLET AT EVENING
  5. HUMIRA [Suspect]
     Active Substance: ADALIMUMAB
     Indication: CROHN^S DISEASE

REACTIONS (7)
  - Sneezing [Recovered/Resolved]
  - Influenza [Recovered/Resolved]
  - Diarrhoea [Unknown]
  - Gastrooesophageal reflux disease [Recovered/Resolved]
  - Cough [Recovered/Resolved]
  - Feeling abnormal [Recovered/Resolved]
  - Oropharyngeal pain [Recovered/Resolved]

NARRATIVE: CASE EVENT DATE: 201403
